FAERS Safety Report 9741928 (Version 1)
Quarter: 2013Q4

REPORT INFORMATION
  Report Type: Spontaneous
  Country: BR (occurrence: BR)
  Receive Date: 20131210
  Receipt Date: 20131210
  Transmission Date: 20140711
  Serious: Yes (Other)
  Sender: FDA-Public Use
  Company Number: BR-JNJFOC-20131202866

PATIENT
  Age: 53 Year
  Sex: Female
  Weight: 73 kg

DRUGS (8)
  1. REMICADE [Suspect]
     Indication: PSORIASIS
     Route: 042
     Dates: start: 20131113
  2. REMICADE [Suspect]
     Indication: PSORIATIC ARTHROPATHY
     Route: 042
     Dates: start: 20131113
  3. METHOTREXATE [Concomitant]
     Indication: PSORIASIS
     Route: 065
     Dates: start: 2009
  4. ISONIAZIDE [Concomitant]
     Route: 065
     Dates: start: 201309
  5. PURAN T4 [Concomitant]
     Indication: HYPOTHYROIDISM
     Route: 065
     Dates: start: 2001
  6. LOSARTAN [Concomitant]
     Indication: BLOOD PRESSURE
     Route: 065
  7. DORFLEX [Concomitant]
     Route: 065
  8. ANADOR [Concomitant]
     Route: 065

REACTIONS (2)
  - Laceration [Recovering/Resolving]
  - Post procedural inflammation [Unknown]
